FAERS Safety Report 14663689 (Version 1)
Quarter: 2018Q1

REPORT INFORMATION
  Report Type: Spontaneous
  Country: US (occurrence: US)
  Receive Date: 20180321
  Receipt Date: 20180321
  Transmission Date: 20180509
  Serious: No
  Sender: FDA-Public Use
  Company Number: US-PFIZER INC-2018116390

PATIENT
  Sex: Female

DRUGS (11)
  1. BACITRACIN. [Suspect]
     Active Substance: BACITRACIN
     Dosage: UNK
  2. ASPIRIN. [Suspect]
     Active Substance: ASPIRIN
     Dosage: UNK
  3. CLARITHROMYCIN. [Suspect]
     Active Substance: CLARITHROMYCIN
     Dosage: UNK
  4. ALLANTOIN. [Suspect]
     Active Substance: ALLANTOIN
     Dosage: UNK
  5. OXYTETRACYCLINE HCL [Suspect]
     Active Substance: OXYTETRACYCLINE HYDROCHLORIDE
     Dosage: UNK
  6. PRAMOXINE [Suspect]
     Active Substance: PRAMOXINE
     Dosage: UNK
  7. NEOMYCIN SULFATE. [Suspect]
     Active Substance: NEOMYCIN SULFATE
     Dosage: UNK
  8. POLYMYXIN [Suspect]
     Active Substance: POLYMYXIN
     Dosage: UNK
  9. GRAMICIDIN [Suspect]
     Active Substance: GRAMICIDIN
     Dosage: UNK
  10. SULFASALAZINE. [Suspect]
     Active Substance: SULFASALAZINE
     Dosage: UNK
  11. TETRACYCLINE HCL [Suspect]
     Active Substance: TETRACYCLINE HYDROCHLORIDE
     Dosage: UNK

REACTIONS (1)
  - Drug hypersensitivity [Unknown]
